FAERS Safety Report 7494961-4 (Version None)
Quarter: 2011Q2

REPORT INFORMATION
  Report Type: 
  Country: None (occurrence: None)
  Receive Date: 20110520
  Receipt Date: 20110517
  Transmission Date: 20111010
  Serious: Yes (Hospitalization)
  Sender: FDA-Public Use
  Company Number: US-CEPHALON-2011002437

PATIENT
  Sex: Male
  Weight: 97 kg

DRUGS (2)
  1. BENDAMUSTINE HCL [Suspect]
     Indication: ACUTE MYELOID LEUKAEMIA
     Route: 041
     Dates: start: 20110427
  2. IDARUBICIN HCL [Suspect]
     Indication: ACUTE MYELOID LEUKAEMIA
     Route: 042
     Dates: start: 20110427

REACTIONS (3)
  - PANCYTOPENIA [None]
  - NEUTROPENIA [None]
  - STAPHYLOCOCCAL INFECTION [None]
